FAERS Safety Report 25698941 (Version 1)
Quarter: 2025Q3

REPORT INFORMATION
  Report Type: Spontaneous
  Country: US (occurrence: US)
  Receive Date: 20250819
  Receipt Date: 20250819
  Transmission Date: 20251021
  Serious: Yes (Hospitalization, Other)
  Sender: ROCHE
  Company Number: US-ROCHE-10000365657

PATIENT
  Sex: Female

DRUGS (12)
  1. XOLAIR PFS [Suspect]
     Active Substance: OMALIZUMAB
     Indication: Asthma
     Dosage: 300 MG 2 ML
     Route: 058
  2. XOLAIR PFS [Suspect]
     Active Substance: OMALIZUMAB
  3. VENTOLIN HFA AER 108(90) [Concomitant]
  4. ESTRDIOL CRE 0.1 MG/GM [Concomitant]
  5. IPRATROPIUM-SOL 0.5-2.5 [Concomitant]
  6. CYCLOBENZAPR TAB 10 MG [Concomitant]
  7. EZETIMIBE TAB 10 MG [Concomitant]
  8. EZETIMIBE TAB 10 MG [Concomitant]
  9. MONTELUKAST TAB 10 MG [Concomitant]
  10. PANTOPRAZOLE TAB 40 MG [Concomitant]
  11. TRELEGY ELLI AEP 100-62.5 [Concomitant]
  12. VALACYCLOVIR TAB 500 MG [Concomitant]

REACTIONS (7)
  - Pneumonia [Unknown]
  - Asthma [Unknown]
  - Oral herpes [Unknown]
  - Dysphonia [Unknown]
  - Benign neoplasm [Unknown]
  - Blood cholesterol increased [Unknown]
  - Seasonal allergy [Unknown]
